FAERS Safety Report 16384464 (Version 1)
Quarter: 2019Q2

REPORT INFORMATION
  Report Type: Spontaneous
  Country: US (occurrence: US)
  Receive Date: 20190531
  Receipt Date: 20190531
  Transmission Date: 20190711
  Serious: Yes (Hospitalization, Other)
  Sender: FDA-Public Use
  Company Number: None

PATIENT
  Age: 63 Year
  Sex: Male

DRUGS (6)
  1. TALTZ [Suspect]
     Active Substance: IXEKIZUMAB
     Indication: PSORIASIS
     Dosage: ?          OTHER FREQUENCY:EVERY 4 WEEKS;?
     Route: 058
     Dates: start: 20180219, end: 20181213
  2. LOSARTAN POT 50MG TABLET [Concomitant]
     Active Substance: LOSARTAN POTASSIUM
     Dates: start: 20180405
  3. SIMVASTATIN 40MG TABLET [Concomitant]
     Dates: start: 20120910
  4. FARXIGA 10MG TABLET [Concomitant]
     Dates: start: 20180405
  5. VITAMIN D3 CAPSULE [Concomitant]
     Dates: start: 20180405
  6. METFORMIN 1000MG TABLET [Concomitant]
     Dates: start: 20180405

REACTIONS (1)
  - Foot amputation [None]

NARRATIVE: CASE EVENT DATE: 20190201
